FAERS Safety Report 8553766-3 (Version None)
Quarter: 2012Q3

REPORT INFORMATION
  Report Type: 
  Country: None (occurrence: None)
  Receive Date: 20120731
  Receipt Date: 20120723
  Transmission Date: 20120928
  Serious: Yes (Hospitalization)
  Sender: FDA-Public Use
  Company Number: FR-GLAXOSMITHKLINE-B0816356A

PATIENT
  Age: 59 Year
  Sex: Female

DRUGS (14)
  1. CLAVULANATE POTASSIUM [Suspect]
     Indication: SEPTIC SHOCK
     Dosage: 5G THREE TIMES PER DAY
     Route: 042
     Dates: start: 20120523, end: 20120605
  2. NEXIUM [Suspect]
     Indication: PRODUCT USED FOR UNKNOWN INDICATION
     Dosage: 40MG PER DAY
     Route: 048
     Dates: start: 20120501, end: 20120609
  3. MIDAZOLAM HCL [Suspect]
     Indication: PRODUCT USED FOR UNKNOWN INDICATION
     Route: 042
     Dates: start: 20120518, end: 20120525
  4. CRESTOR [Concomitant]
     Route: 065
  5. AUGMENTIN '125' [Suspect]
     Indication: SEPTIC SHOCK
     Dosage: 1G THREE TIMES PER DAY
     Route: 042
     Dates: start: 20120519, end: 20120523
  6. CORDARONE [Suspect]
     Indication: PRODUCT USED FOR UNKNOWN INDICATION
     Route: 065
     Dates: start: 20120518, end: 20120521
  7. METRONIDAZOLE [Suspect]
     Indication: PRODUCT USED FOR UNKNOWN INDICATION
     Route: 042
     Dates: start: 20120517, end: 20120519
  8. CEFTRIAXONE [Suspect]
     Indication: PRODUCT USED FOR UNKNOWN INDICATION
     Route: 042
     Dates: start: 20120517, end: 20120519
  9. CIPROFLOXACIN HYDROCHLORIDE [Concomitant]
     Route: 065
     Dates: start: 20120523, end: 20120529
  10. ZYVOX [Concomitant]
     Route: 065
     Dates: start: 20120601, end: 20120609
  11. ACETAMINOPHEN [Concomitant]
     Route: 065
  12. LOVENOX [Concomitant]
     Route: 065
  13. RIMACTANE [Concomitant]
     Dosage: 2400MG PER DAY
     Route: 065
     Dates: start: 20120606, end: 20120610
  14. STILNOX [Concomitant]
     Route: 065
     Dates: start: 20120607

REACTIONS (4)
  - CONDITION AGGRAVATED [None]
  - JAUNDICE [None]
  - CHOLESTASIS [None]
  - HYPERBILIRUBINAEMIA [None]
